FAERS Safety Report 6296430-6 (Version None)
Quarter: 2009Q3

REPORT INFORMATION
  Report Type: 
  Country: None (occurrence: None)
  Receive Date: 20090804
  Receipt Date: 20090728
  Transmission Date: 20100115
  Serious: Yes (Other)
  Sender: FDA-Public Use
  Company Number: IT-AMGEN-UK357764

PATIENT
  Sex: Male
  Weight: 98 kg

DRUGS (5)
  1. VECTIBIX [Suspect]
     Indication: COLORECTAL CANCER
     Route: 065
     Dates: start: 20081128, end: 20090310
  2. OMEPRAZOLE [Concomitant]
     Route: 048
  3. OXYCODONE [Concomitant]
     Route: 048
  4. LEVOLAC [Concomitant]
  5. NADROPARIN CALCIUM [Concomitant]
     Route: 048
     Dates: start: 20080626, end: 20090302

REACTIONS (1)
  - FOLLICULITIS [None]
